FAERS Safety Report 15747280 (Version 1)
Quarter: 2018Q4

REPORT INFORMATION
  Report Type: Spontaneous
  Country: US (occurrence: US)
  Receive Date: 20181220
  Receipt Date: 20181220
  Transmission Date: 20190205
  Serious: No
  Sender: FDA-Public Use
  Company Number: US-AVADEL SPECIALTY PHARMACEUTICALS, LLC-2018AVA00371

PATIENT
  Age: 73 Year
  Sex: Male
  Weight: 65.76 kg

DRUGS (7)
  1. FIBERCON [Concomitant]
     Active Substance: CALCIUM POLYCARBOPHIL
  2. NOCTIVA [Suspect]
     Active Substance: DESMOPRESSIN ACETATE
     Indication: NOCTURIA
     Dosage: 0.83 ?G, 1X/DAY 30 MINUTES BEFORE BEDTIME
     Route: 045
     Dates: start: 20180919
  3. MELOXICAM. [Concomitant]
     Active Substance: MELOXICAM
  4. OMEPRAZOLE. [Concomitant]
     Active Substance: OMEPRAZOLE
  5. LOW DOSE ASPIRIN [Concomitant]
     Active Substance: ASPIRIN
  6. SIMVASTATIN. [Concomitant]
     Active Substance: SIMVASTATIN
  7. VITAMIN D [Concomitant]
     Active Substance: CHOLECALCIFEROL

REACTIONS (5)
  - Urine output increased [Recovering/Resolving]
  - Product preparation issue [Not Recovered/Not Resolved]
  - Drug ineffective [Recovered/Resolved]
  - Pollakiuria [Recovering/Resolving]
  - Device malfunction [Not Recovered/Not Resolved]

NARRATIVE: CASE EVENT DATE: 20180919
